FAERS Safety Report 11225073 (Version 1)
Quarter: 2015Q2

REPORT INFORMATION
  Report Type: Spontaneous
  Country: US (occurrence: US)
  Receive Date: 20150629
  Receipt Date: 20150629
  Transmission Date: 20150821
  Serious: No
  Sender: FDA-Public Use
  Company Number: US-MYLANLABS-2015M1010113

PATIENT
  Sex: Female

DRUGS (2)
  1. SERTRALINE [Concomitant]
     Active Substance: SERTRALINE HYDROCHLORIDE
     Dosage: UNK
  2. DISULFIRAM TABLETS USP [Suspect]
     Active Substance: DISULFIRAM
     Dosage: UNK
     Dates: start: 20150318

REACTIONS (1)
  - Tremor [Not Recovered/Not Resolved]
